FAERS Safety Report 25522869 (Version 3)
Quarter: 2025Q3

REPORT INFORMATION
  Report Type: Report from Study
  Country: CL (occurrence: CL)
  Receive Date: 20250707
  Receipt Date: 20250827
  Transmission Date: 20251020
  Serious: Yes (Death)
  Sender: NOVARTIS
  Company Number: CL-002147023-NVSC2025CL107244

PATIENT
  Sex: Female

DRUGS (5)
  1. GLIVEC [Suspect]
     Active Substance: IMATINIB MESYLATE
     Indication: Gastrointestinal stromal tumour
     Route: 065
  2. GLIVEC [Suspect]
     Active Substance: IMATINIB MESYLATE
     Route: 065
     Dates: start: 202010
  3. GLIVEC [Suspect]
     Active Substance: IMATINIB MESYLATE
     Route: 065
  4. GLIVEC [Suspect]
     Active Substance: IMATINIB MESYLATE
     Dosage: 800 MG, QD
     Route: 048
     Dates: start: 202403, end: 202505
  5. SUNITINIB [Concomitant]
     Active Substance: SUNITINIB
     Indication: Product used for unknown indication
     Route: 065

REACTIONS (3)
  - Gastrointestinal cancer metastatic [Fatal]
  - Malignant neoplasm progression [Fatal]
  - Pain [Recovered/Resolved]
